FAERS Safety Report 9846200 (Version 1)
Quarter: 2014Q1

REPORT INFORMATION
  Report Type: Spontaneous
  Country: HU (occurrence: None)
  Receive Date: 20140123
  Receipt Date: 20140123
  Transmission Date: 20141002
  Serious: Yes (Other)
  Sender: FDA-Public Use
  Company Number: 2014AP000223

PATIENT
  Age: 58 Year
  Sex: Female

DRUGS (7)
  1. ALENDRONIC ACID [Suspect]
     Indication: OSTEOPOROSIS
     Dosage: UNKNOWN; PO; QW
     Route: 048
     Dates: start: 201308, end: 201310
  2. CALCICHEW D3 [Suspect]
     Indication: OSTEOPOROSIS
     Dosage: UNKNOWN; PO; BID
     Route: 048
     Dates: start: 201308, end: 201310
  3. FRONTIN (ALPRAZOLAM) [Concomitant]
  4. MAPROTILINE (MAPROTILINE) [Concomitant]
  5. DULOXETINE (DULOXETINE) (DULOXETINE) [Concomitant]
  6. VALSARTAN (VALSARTAN) [Concomitant]
  7. SIMVASTATIN (SIMVASTATIN) [Concomitant]

REACTIONS (4)
  - Gastric ulcer [None]
  - Gastritis [None]
  - Aphagia [None]
  - Weight decreased [None]
